FAERS Safety Report 11275742 (Version 1)
Quarter: 2015Q2

REPORT INFORMATION
  Report Type: Spontaneous
  Country: US (occurrence: None)
  Receive Date: 20150625
  Receipt Date: 20150625
  Transmission Date: 20150821
  Serious: No
  Sender: FDA-Public Use
  Company Number: A-NJ2015-112890

PATIENT
  Age: 69 Year
  Sex: Female

DRUGS (12)
  1. ASPIRIN (ACETYLSALICYLIC ACID) [Concomitant]
     Active Substance: ASPIRIN
  2. NASONEX [Concomitant]
     Active Substance: MOMETASONE FUROATE
  3. METHOTREXATE SODIUM. [Concomitant]
     Active Substance: METHOTREXATE SODIUM
  4. LASIX [Concomitant]
     Active Substance: FUROSEMIDE
  5. AMLODIPINE BESYLATE (AMLODIPINE BESILATE) [Concomitant]
     Active Substance: AMLODIPINE BESYLATE
  6. IRBESARTAN. [Concomitant]
     Active Substance: IRBESARTAN
  7. LEVOTHYROXINE SODIUM. [Concomitant]
     Active Substance: LEVOTHYROXINE SODIUM
  8. OPSUMIT [Suspect]
     Active Substance: MACITENTAN
     Indication: PULMONARY ARTERIAL HYPERTENSION
     Route: 048
     Dates: start: 20150129
  9. SPIRONOLACTON (SPIRONOLACTONE) [Concomitant]
  10. OMEPRAZOLE. [Concomitant]
     Active Substance: OMEPRAZOLE
  11. SENSIPAR (CINACALCET HYDROCHLORIDE) [Concomitant]
  12. PROMETRIUM [Concomitant]
     Active Substance: PROGESTERONE

REACTIONS (1)
  - Oedema [None]

NARRATIVE: CASE EVENT DATE: 20150206
